FAERS Safety Report 14701739 (Version 1)
Quarter: 2018Q1

REPORT INFORMATION
  Report Type: Spontaneous
  Country: US (occurrence: US)
  Receive Date: 20180331
  Receipt Date: 20180331
  Transmission Date: 20180509
  Serious: No
  Sender: FDA-Public Use
  Company Number: US-009507513-1803USA011553

PATIENT
  Age: 31 Year
  Sex: Female
  Weight: 72.56 kg

DRUGS (4)
  1. NUVARING [Suspect]
     Active Substance: ETHINYL ESTRADIOL\ETONOGESTREL
     Dosage: 1 DF, EVERY 21 DAYS CONTINUOUSLY
     Route: 067
  2. NUVARING [Suspect]
     Active Substance: ETHINYL ESTRADIOL\ETONOGESTREL
     Dosage: 1 DF, EVERY 21 DAYS CONTINUOUSLY
     Route: 067
  3. NUVARING [Suspect]
     Active Substance: ETHINYL ESTRADIOL\ETONOGESTREL
     Dosage: 1 DF, EVERY 21 DAYS CONTINUOUSLY
     Route: 067
     Dates: end: 20180317
  4. NUVARING [Suspect]
     Active Substance: ETHINYL ESTRADIOL\ETONOGESTREL
     Dosage: 1 DF, EVERY 21 DAYS CONTINUOUSLY
     Route: 067

REACTIONS (5)
  - Inappropriate schedule of drug administration [Unknown]
  - Product quality issue [Unknown]
  - Oligomenorrhoea [Not Recovered/Not Resolved]
  - Drug prescribing error [Unknown]
  - Drug dose omission [Unknown]

NARRATIVE: CASE EVENT DATE: 20180318
